FAERS Safety Report 8722009 (Version 2)
Quarter: 2013Q1

REPORT INFORMATION
  Report Type: Spontaneous
  Country: US (occurrence: ES)
  Receive Date: 20120814
  Receipt Date: 20130109
  Transmission Date: 20140127
  Serious: Yes (Hospitalization)
  Sender: FDA-Public Use
  Company Number: US-BAYER-2012-081331

PATIENT
  Age: 27 Year
  Sex: Female
  Weight: 77.1 kg

DRUGS (1)
  1. YASMIN [Suspect]
     Dosage: UNK
     Route: 048
     Dates: start: 20100109, end: 201106

REACTIONS (7)
  - Thrombosis [None]
  - Cerebrovascular accident [None]
  - Injury [None]
  - Pain [None]
  - Pain [None]
  - Hypoaesthesia [None]
  - Sensory loss [None]
